FAERS Safety Report 7334369-5 (Version None)
Quarter: 2011Q1

REPORT INFORMATION
  Report Type: 
  Country: None (occurrence: None)
  Receive Date: 20110307
  Receipt Date: 20110221
  Transmission Date: 20110831
  Serious: Yes (Other)
  Sender: FDA-Public Use
  Company Number: PHHY2011US15109

PATIENT
  Sex: Female

DRUGS (7)
  1. RECLAST [Suspect]
     Dosage: 5 MG/100 ML ONCE YEARLY
     Dates: start: 20090101
  2. SPIRIVA [Concomitant]
     Dosage: UNK
  3. RECLAST [Suspect]
     Dosage: UNK
     Dates: start: 20100101
  4. LEVOXYL [Concomitant]
     Dosage: 1.67 MG
  5. METOPROLOL [Concomitant]
     Dosage: 150 MG TWICE DAY
  6. DIOVAN [Concomitant]
     Dosage: 320 MG PER DAY
  7. PRAVASTATIN SODIUM [Concomitant]
     Dosage: UNK

REACTIONS (2)
  - BONE DENSITY ABNORMAL [None]
  - PELVIC FRACTURE [None]
